FAERS Safety Report 14546975 (Version 7)
Quarter: 2018Q2

REPORT INFORMATION
  Report Type: Spontaneous
  Country: US (occurrence: US)
  Receive Date: 20180219
  Receipt Date: 20180611
  Transmission Date: 20180711
  Serious: No
  Sender: FDA-Public Use
  Company Number: US-PFIZER INC-2018066317

PATIENT
  Age: 65 Year
  Sex: Male
  Weight: 102 kg

DRUGS (9)
  1. PRILOSEC [Concomitant]
     Active Substance: OMEPRAZOLE MAGNESIUM
     Dosage: UNK
  2. CRESTOR [Concomitant]
     Active Substance: ROSUVASTATIN CALCIUM
     Dosage: UNK
  3. SUTENT [Suspect]
     Active Substance: SUNITINIB MALATE
     Dosage: 50 MG, CYCLIC (D 1-28Q 42 DAYS)
     Route: 048
     Dates: start: 20180211
  4. SUTENT [Suspect]
     Active Substance: SUNITINIB MALATE
     Dosage: 50 MG, CYCLIC (28 DAYS ON/14 DAYS OFF)
     Dates: start: 20180204
  5. DOXAZOSIN [Concomitant]
     Active Substance: DOXAZOSIN\DOXAZOSIN MESYLATE
     Dosage: UNK
  6. SUTENT [Suspect]
     Active Substance: SUNITINIB MALATE
     Indication: METASTATIC RENAL CELL CARCINOMA
     Dosage: 50 MG, CYCLIC (D 1-28Q 42 DAYS)
     Route: 048
     Dates: start: 20180209
  7. COZAAR [Concomitant]
     Active Substance: LOSARTAN POTASSIUM
     Indication: BLOOD PRESSURE ABNORMAL
     Dosage: UNK
  8. BABY ASPIRIN [Concomitant]
     Active Substance: ASPIRIN
     Dosage: UNK
  9. METOPROLOL. [Concomitant]
     Active Substance: METOPROLOL
     Indication: BLOOD PRESSURE ABNORMAL
     Dosage: UNK

REACTIONS (23)
  - Back pain [Unknown]
  - Goitre [Unknown]
  - Hypersensitivity [Unknown]
  - Dehydration [Recovering/Resolving]
  - Blood pressure abnormal [Recovering/Resolving]
  - Epistaxis [Unknown]
  - Dry mouth [Unknown]
  - Pruritus [Recovering/Resolving]
  - Dyspepsia [Recovered/Resolved]
  - White blood cell count decreased [Unknown]
  - Dry skin [Unknown]
  - Pain in extremity [Unknown]
  - Dysgeusia [Recovered/Resolved]
  - Chest pain [Unknown]
  - Dyspnoea [Unknown]
  - Platelet count decreased [Unknown]
  - Chest discomfort [Unknown]
  - Myalgia [Recovered/Resolved]
  - Hypertension [Unknown]
  - Stomatitis [Recovering/Resolving]
  - Fatigue [Recovered/Resolved]
  - Rash [Unknown]
  - Sinus disorder [Unknown]

NARRATIVE: CASE EVENT DATE: 2018
